FAERS Safety Report 5047278-1 (Version None)
Quarter: 2006Q3

REPORT INFORMATION
  Report Type: 
  Country: None (occurrence: None)
  Receive Date: 20060711
  Receipt Date: 20060223
  Transmission Date: 20061208
  Serious: Yes (Life-Threatening)
  Sender: FDA-Public Use
  Company Number: 2006AP00944

PATIENT
  Age: 46 Year
  Sex: Female
  Weight: 40.1 kg

DRUGS (4)
  1. OMEPRAL [Suspect]
     Indication: GASTRIC ULCER
     Route: 048
     Dates: start: 20060126, end: 20060207
  2. NEO-MINOPHAGEN C [Concomitant]
     Route: 042
     Dates: start: 20060118, end: 20060221
  3. VITAMEDIN [Concomitant]
     Route: 042
     Dates: start: 20060111, end: 20060213
  4. LACTULOSE [Concomitant]
     Route: 048
     Dates: start: 20060118, end: 20060120

REACTIONS (1)
  - TOXIC EPIDERMAL NECROLYSIS [None]
